FAERS Safety Report 8831252 (Version 3)
Quarter: 2012Q4

REPORT INFORMATION
  Report Type: 
  Country: BR (occurrence: BR)
  Receive Date: 20121008
  Receipt Date: 20121121
  Transmission Date: 20130627
  Serious: Yes (Death, Hospitalization, Other)
  Sender: FDA-Public Use
  Company Number: BR-PFIZER INC-2012211361

PATIENT
  Age: 70 Year
  Sex: Male
  Weight: 70 kg

DRUGS (5)
  1. SUTENT [Suspect]
     Indication: RENAL CELL CARCINOMA
     Dosage: 50 mg, 1x/day (cycle 4 to 2)
     Route: 048
     Dates: start: 20120725
  2. AMLODIPINE [Concomitant]
     Dosage: 5 mg, 2x/day
  3. LOSARTAN [Concomitant]
     Dosage: 50 mg, UNK
  4. PROPANOLOL [Concomitant]
     Dosage: 50 mg, UNK
  5. OMEPRAZOLE [Concomitant]
     Dosage: 20 mg, UNK

REACTIONS (7)
  - Pneumonia [Fatal]
  - Oesophagobronchial fistula [Fatal]
  - Toxicity to various agents [Fatal]
  - Sepsis [Unknown]
  - Blood pressure decreased [Unknown]
  - Skin lesion [Unknown]
  - Diarrhoea [Unknown]
